FAERS Safety Report 9619763 (Version 2)
Quarter: 2013Q4

REPORT INFORMATION
  Report Type: Spontaneous
  Country: US (occurrence: US)
  Receive Date: 20131014
  Receipt Date: 20131014
  Transmission Date: 20140711
  Serious: Yes (Other)
  Sender: FDA-Public Use
  Company Number: US-BANPHARM-20131761

PATIENT
  Age: 68 Year
  Sex: Female
  Weight: 63.05 kg

DRUGS (3)
  1. ALEVE LIQUID GELS 220 MG [Suspect]
     Indication: MYALGIA
     Dosage: 1 DF, PRN,
     Route: 048
     Dates: start: 2011
  2. LEVOTHYROXINE [Concomitant]
  3. GENERIC 81MG ASPIRIN [Concomitant]

REACTIONS (1)
  - Blood test abnormal [Unknown]
